FAERS Safety Report 6550916-5 (Version None)
Quarter: 2010Q1

REPORT INFORMATION
  Report Type: 
  Country: None (occurrence: None)
  Receive Date: 20100125
  Receipt Date: 20090107
  Transmission Date: 20100710
  Serious: Yes (Other)
  Sender: FDA-Public Use
  Company Number: US-TYCO HEALTHCARE/MALLINCKRODT-T200801896

PATIENT
  Sex: Female
  Weight: 70.295 kg

DRUGS (8)
  1. OPTIRAY 350 [Suspect]
     Indication: COMPUTERISED TOMOGRAM ABDOMEN
     Dosage: 90 ML, SINGLE
     Route: 042
     Dates: start: 20081103, end: 20081103
  2. GLUCOSAMINE/CHONDROITIN            /01625901/ [Concomitant]
     Dosage: UNK
  3. CALCIUM CITRATE [Concomitant]
     Dosage: UNK
  4. HYDROCHLOROTHIAZIDE W/MOEXIPRIL HYDROCHLORIDE [Concomitant]
     Dosage: UNK
  5. AMLODIPINE BESYLATE [Concomitant]
     Dosage: UNK
  6. POTASSIUM CHLORIDE [Concomitant]
     Dosage: UNK
  7. PRAVASTATIN [Concomitant]
     Dosage: UNK
  8. CETIRIZINE HCL [Concomitant]
     Dosage: UNK

REACTIONS (2)
  - THROAT IRRITATION [None]
  - THROAT TIGHTNESS [None]
